FAERS Safety Report 19057857 (Version 1)
Quarter: 2021Q1

REPORT INFORMATION
  Report Type: Spontaneous
  Country: US (occurrence: US)
  Receive Date: 20210324
  Receipt Date: 20210324
  Transmission Date: 20210420
  Serious: No
  Sender: FDA-Public Use
  Company Number: US-SEBELA IRELAND LIMITED-2020SEB00063

PATIENT
  Age: 67 Year
  Sex: Male
  Weight: 81.63 kg

DRUGS (4)
  1. ALFUZOSIN [Concomitant]
     Active Substance: ALFUZOSIN
  2. NAFTIN [Suspect]
     Active Substance: NAFTIFINE HYDROCHLORIDE
     Indication: CELLULITIS
     Dosage: LARGE AMOUNT THAT CAME OUT OF THE TUBE/ EXCESSIVE AMOUNT, 2X/DAY IN THE EARLY MORNING AND REAPPLY AT
     Route: 061
     Dates: start: 20200528, end: 2020
  3. LISINOPRIL. [Concomitant]
     Active Substance: LISINOPRIL
  4. NAFTIN [Suspect]
     Active Substance: NAFTIFINE HYDROCHLORIDE
     Indication: ONYCHOMYCOSIS
     Dosage: A SMALL PORTION, 2X/DAY IN THE EARLY MORNING AND REAPPLY AT NIGHT BEFORE BED
     Route: 061
     Dates: start: 2020, end: 20200604

REACTIONS (10)
  - Drug ineffective [Recovered/Resolved]
  - Skin exfoliation [Not Recovered/Not Resolved]
  - Onychomycosis [Unknown]
  - Erythema [Recovering/Resolving]
  - Off label use [Recovered/Resolved]
  - Cellulitis [Unknown]
  - Dry skin [Recovering/Resolving]
  - Burning sensation [Recovering/Resolving]
  - Scab [Not Recovered/Not Resolved]
  - Overdose [Recovered/Resolved]

NARRATIVE: CASE EVENT DATE: 2020
